FAERS Safety Report 23990497 (Version 1)
Quarter: 2024Q2

REPORT INFORMATION
  Report Type: Spontaneous
  Country: KZ (occurrence: KZ)
  Receive Date: 20240619
  Receipt Date: 20240619
  Transmission Date: 20240715
  Serious: Yes (Hospitalization)
  Sender: FDA-Public Use
  Company Number: KZ--SPO/KAZ/24/0008649

PATIENT
  Age: 38 Year
  Sex: Female
  Weight: 80 kg

DRUGS (2)
  1. CIPROFLOXACIN [Suspect]
     Active Substance: CIPROFLOXACIN
     Indication: Inflammation
     Route: 048
     Dates: start: 20240530, end: 20240530
  2. INDOMETHACIN [Concomitant]
     Active Substance: INDOMETHACIN
     Indication: Inflammation
     Route: 054
     Dates: start: 20240530

REACTIONS (8)
  - Asthenia [Recovered/Resolved]
  - Tachycardia [Recovered/Resolved]
  - Hypoaesthesia [Recovered/Resolved]
  - Blood pressure increased [Recovered/Resolved]
  - Panic disorder [Unknown]
  - Fear [Unknown]
  - Seizure [Unknown]
  - Depression [Unknown]
